FAERS Safety Report 7355071-X (Version None)
Quarter: 2011Q1

REPORT INFORMATION
  Report Type: 
  Country: None (occurrence: None)
  Receive Date: 20110316
  Receipt Date: 20090827
  Transmission Date: 20110831
  Serious: Yes (Other)
  Sender: FDA-Public Use
  Company Number: US-PFIZER INC-2009247400

PATIENT
  Sex: Female
  Weight: 90.703 kg

DRUGS (11)
  1. SERTRALINE HYDROCHLORIDE [Suspect]
     Indication: BIPOLAR I DISORDER
     Route: 048
     Dates: start: 20080101, end: 20090501
  2. ACTOS [Concomitant]
     Indication: DIABETES MELLITUS
     Dosage: 30 MG, 1X/DAY
     Route: 048
     Dates: start: 20080601
  3. LEVOTHYROXINE [Concomitant]
     Dosage: 100 UG, 1X/DAY
     Route: 048
     Dates: start: 19980101
  4. VYTORIN [Concomitant]
     Indication: BLOOD CHOLESTEROL INCREASED
     Dosage: 10/20 ONCE DAILY
     Route: 048
     Dates: start: 20050101
  5. METFORMIN [Concomitant]
     Indication: DIABETES MELLITUS
     Dosage: 1000 MG, 2X/DAY
     Route: 048
     Dates: start: 20040401
  6. HALOPERIDOL [Concomitant]
     Indication: PSYCHOTIC DISORDER
     Dosage: 5 MG, 1X/DAY
     Route: 048
     Dates: start: 20060101, end: 20090501
  7. LAMOTRIGINE [Concomitant]
     Indication: MOOD ALTERED
     Dosage: UNK
     Route: 048
     Dates: start: 20090501
  8. SERTRALINE HYDROCHLORIDE [Suspect]
     Indication: OBSESSIVE-COMPULSIVE DISORDER
  9. ARIPIPRAZOLE [Concomitant]
     Indication: PSYCHOTIC DISORDER
     Dosage: 50 MG, 1X/DAY
     Route: 048
     Dates: start: 20040101
  10. SERTRALINE HYDROCHLORIDE [Suspect]
     Indication: ANXIETY
  11. ORAL CONTRACEPTIVE NOS [Concomitant]
     Indication: CONTRACEPTION
     Dosage: UNK
     Route: 048

REACTIONS (4)
  - DRUG INEFFECTIVE [None]
  - DEPRESSION [None]
  - SUICIDAL IDEATION [None]
  - FATIGUE [None]
